FAERS Safety Report 5888876-2 (Version None)
Quarter: 2008Q3

REPORT INFORMATION
  Report Type: 
  Country: None (occurrence: None)
  Receive Date: 20080919
  Receipt Date: 20080912
  Transmission Date: 20090109
  Serious: Yes (Other)
  Sender: FDA-Public Use
  Company Number: PHHY2008GB17224

PATIENT
  Sex: Male

DRUGS (5)
  1. CLOZARIL [Suspect]
     Indication: SCHIZOPHRENIA
     Dosage: UNK
     Dates: start: 20031120
  2. CLOZARIL [Suspect]
     Dosage: 350 MG, QD
  3. FLUOXETINE [Concomitant]
     Indication: DEPRESSION
     Dosage: 40 MG DAILY
     Route: 048
     Dates: start: 20051001
  4. AMISULPRIDE [Concomitant]
     Dosage: 400 MG DAILY
     Route: 048
     Dates: start: 20061201
  5. LACTULOSE [Concomitant]
     Indication: CONSTIPATION
     Dosage: 15 ML DAILY
     Route: 048

REACTIONS (2)
  - DIZZINESS [None]
  - DRUG LEVEL CHANGED [None]
